FAERS Safety Report 4714229-6 (Version None)
Quarter: 2005Q3

REPORT INFORMATION
  Report Type: 
  Country: None (occurrence: None)
  Receive Date: 20050713
  Receipt Date: 20050713
  Transmission Date: 20060218
  Serious: No
  Sender: FDA-Public Use
  Company Number: None

PATIENT
  Age: 45 Year
  Sex: Female
  Weight: 70.3075 kg

DRUGS (1)
  1. ADIPEX [Suspect]
     Indication: WEIGHT CONTROL
     Dosage: 37.5 MG  ONCE DAILY ORAL
     Route: 048
     Dates: start: 20050510, end: 20050620

REACTIONS (1)
  - MYOCARDIAL INFARCTION [None]
